FAERS Safety Report 25527331 (Version 1)
Quarter: 2025Q3

REPORT INFORMATION
  Report Type: Spontaneous
  Country: IN (occurrence: IN)
  Receive Date: 20250708
  Receipt Date: 20250708
  Transmission Date: 20251021
  Serious: Yes (Other)
  Sender: NATCO PHARMA
  Company Number: IN-NATCO-000036

PATIENT
  Age: 66 Year
  Sex: Female

DRUGS (1)
  1. PACLITAXEL [Suspect]
     Active Substance: PACLITAXEL
     Indication: Breast cancer stage III
     Dosage: 80 MG/M2
     Route: 065

REACTIONS (2)
  - Retinal artery occlusion [Recovered/Resolved]
  - Blindness [Recovered/Resolved]
